FAERS Safety Report 24043452 (Version 3)
Quarter: 2024Q4

REPORT INFORMATION
  Report Type: Spontaneous
  Country: GB (occurrence: GB)
  Receive Date: 20240703
  Receipt Date: 20241220
  Transmission Date: 20250114
  Serious: Yes (Hospitalization, Other)
  Sender: AUROBINDO
  Company Number: GB-MYLANLABS-2024M1024342

PATIENT
  Sex: Male

DRUGS (11)
  1. SERTRALINE [Suspect]
     Active Substance: SERTRALINE HYDROCHLORIDE
     Indication: Anxiety
     Dosage: 50 MILLIGRAM, ONCE A DAY (50 MILLIGRAM, AM (IN MORNING))
     Route: 065
  2. VENLAFAXINE [Suspect]
     Active Substance: VENLAFAXINE HYDROCHLORIDE
     Indication: Product used for unknown indication
     Dosage: UNK, ONCE A DAY ((UNK, BID (2 TABLETS)
     Route: 065
  3. CLOZARIL [Suspect]
     Active Substance: CLOZAPINE
     Indication: Schizophrenia
     Dosage: UNK (REDUCED DOSE)
     Route: 048
     Dates: end: 20241121
  4. CLOZARIL [Suspect]
     Active Substance: CLOZAPINE
     Dosage: 325 MILLIGRAM, ONCE A DAY (150MG IN MORNING, 175 MG IN NIGHT)
     Route: 048
     Dates: start: 20240208
  5. SERTRALINE [Concomitant]
     Active Substance: SERTRALINE HYDROCHLORIDE
     Indication: Product used for unknown indication
     Dosage: 50 MILLIGRAM, ONCE A DAY  (50 MILLIGRAM, AM(IN MORNING)
     Route: 065
     Dates: start: 20240425
  6. BUTYLSCOPOLAMINE BROMIDE [Concomitant]
     Active Substance: BUTYLSCOPOLAMINE BROMIDE
     Indication: Product used for unknown indication
     Dosage: 900 MICROGRAM, ONCE A DAY
     Route: 048
     Dates: start: 20240215
  7. BUTYLSCOPOLAMINE BROMIDE [Concomitant]
     Active Substance: BUTYLSCOPOLAMINE BROMIDE
     Dosage: 300 MICROGRAM, 3 TIMES A DAY (300 MICROGRAM, TID (THREE TIMES A DAY))
     Route: 048
     Dates: start: 20240215
  8. RISPERIDONE [Concomitant]
     Active Substance: RISPERIDONE
     Indication: Product used for unknown indication
     Dosage: UNK
     Route: 065
  9. RISPERIDONE [Concomitant]
     Active Substance: RISPERIDONE
     Dosage: UNK
     Route: 065
     Dates: start: 202402
  10. FEXOFENADINE [Concomitant]
     Active Substance: FEXOFENADINE HYDROCHLORIDE
     Indication: Product used for unknown indication
     Dosage: 180 MILLIGRAM
     Route: 065
  11. SCOPOLAMINE HYDROBROMIDE [Concomitant]
     Active Substance: SCOPOLAMINE HYDROBROMIDE
     Indication: Product used for unknown indication
     Dosage: 900 MICROGRAM, ONCE A DAY ((300 MICROGRAM, TID (THREE TIMES A DAY))
     Route: 048
     Dates: start: 20240215

REACTIONS (4)
  - Generalised tonic-clonic seizure [Recovered/Resolved]
  - Eosinophilia [Unknown]
  - Heart rate increased [Unknown]
  - Wrong product administered [Unknown]
